FAERS Safety Report 24705529 (Version 1)
Quarter: 2024Q4

REPORT INFORMATION
  Report Type: Spontaneous
  Country: US (occurrence: US)
  Receive Date: 20241206
  Receipt Date: 20241206
  Transmission Date: 20250114
  Serious: No
  Sender: ALVOGEN
  Company Number: US-ALVOGEN-2024095626

PATIENT
  Sex: Female
  Weight: 67.1 kg

DRUGS (2)
  1. LEVOTHYROXINE SODIUM [Suspect]
     Active Substance: LEVOTHYROXINE SODIUM
     Indication: Product used for unknown indication
  2. LIOTHYRONINE SODIUM [Suspect]
     Active Substance: LIOTHYRONINE SODIUM
     Indication: Autoimmune thyroiditis
     Route: 048
     Dates: start: 2022

REACTIONS (9)
  - Bone pain [Recovering/Resolving]
  - Pain in extremity [Recovering/Resolving]
  - Feeling of body temperature change [Recovering/Resolving]
  - Onychoclasis [Recovering/Resolving]
  - Skin disorder [Recovering/Resolving]
  - Thyroid function test abnormal [Recovering/Resolving]
  - Allergic reaction to excipient [Recovering/Resolving]
  - Malaise [Recovering/Resolving]
  - Alopecia [Recovering/Resolving]

NARRATIVE: CASE EVENT DATE: 20240901
